FAERS Safety Report 4542873-8 (Version None)
Quarter: 2004Q4

REPORT INFORMATION
  Report Type: 
  Country: None (occurrence: None)
  Receive Date: 20041229
  Receipt Date: 20041216
  Transmission Date: 20050328
  Serious: Yes (Other)
  Sender: FDA-Public Use
  Company Number: 2004114439

PATIENT
  Sex: Male
  Weight: 109.7705 kg

DRUGS (7)
  1. TIKOSYN [Suspect]
     Indication: ATRIAL FIBRILLATION
     Dosage: 500 MCG (250 MCG, 2 IN 1 D), ORAL
     Route: 048
     Dates: start: 19990101
  2. PROCHLORPERAZINE EDISYLATE [Suspect]
     Indication: NAUSEA
     Dates: start: 20041001, end: 20041201
  3. FLUOROURACIL [Suspect]
     Indication: HEPATIC NEOPLASM MALIGNANT
     Dates: start: 20041001
  4. BEVACIZUMAB (BEVACIZUMAB) [Suspect]
     Indication: HEPATIC NEOPLASM MALIGNANT
     Dates: start: 20041001
  5. WARFARIN [Concomitant]
  6. ATENOLOL [Concomitant]
  7. VALSARTAN [Concomitant]

REACTIONS (12)
  - ATRIAL FIBRILLATION [None]
  - BLOOD PRESSURE SYSTOLIC INCREASED [None]
  - COLON CANCER [None]
  - CONDITION AGGRAVATED [None]
  - DISEASE RECURRENCE [None]
  - EXTRASYSTOLES [None]
  - GINGIVAL BLEEDING [None]
  - HEPATIC NEOPLASM MALIGNANT [None]
  - POST PROCEDURAL NAUSEA [None]
  - PROTHROMBIN TIME ABNORMAL [None]
  - PROTHROMBIN TIME PROLONGED [None]
  - TREATMENT NONCOMPLIANCE [None]
